FAERS Safety Report 6879474-2 (Version None)
Quarter: 2010Q3

REPORT INFORMATION
  Report Type: 
  Country: None (occurrence: None)
  Receive Date: 20100728
  Receipt Date: 20100720
  Transmission Date: 20110219
  Serious: Yes (Life-Threatening)
  Sender: FDA-Public Use
  Company Number: GXKR2010FR02477

PATIENT

DRUGS (4)
  1. TRAMADOL (NGX) [Suspect]
     Dosage: 10 G, UNK
     Route: 065
  2. HYDROXYZINE (NGX) [Suspect]
     Dosage: 6 G, UNK
     Route: 065
  3. CLONAZEPAM [Suspect]
     Dosage: 80 MG, UNK
     Route: 065
  4. GABAPENTIN [Suspect]
     Dosage: 1 G, UNK
     Route: 065

REACTIONS (5)
  - BUNDLE BRANCH BLOCK RIGHT [None]
  - CARDIAC ARREST [None]
  - LIFE SUPPORT [None]
  - MECHANICAL VENTILATION [None]
  - OVERDOSE [None]
